FAERS Safety Report 7207892-1 (Version None)
Quarter: 2011Q1

REPORT INFORMATION
  Report Type: 
  Country: None (occurrence: None)
  Receive Date: 20110104
  Receipt Date: 20101221
  Transmission Date: 20110831
  Serious: Yes (Hospitalization, Congenital Anomaly)
  Sender: FDA-Public Use
  Company Number: US-JNJFOC-20101208825

PATIENT

DRUGS (5)
  1. ACETAMINOPHEN [Suspect]
     Indication: DRUG EXPOSURE DURING PREGNANCY
     Route: 064
  2. ACETAMINOPHEN [Suspect]
     Route: 064
  3. ASPIRIN [Suspect]
     Indication: DRUG EXPOSURE DURING PREGNANCY
  4. CAFFEINE [Suspect]
     Indication: DRUG EXPOSURE DURING PREGNANCY
  5. SALICYLAMIDE [Suspect]
     Indication: DRUG EXPOSURE DURING PREGNANCY

REACTIONS (5)
  - DEXTROCARDIA [None]
  - CONGENITAL ANOMALY [None]
  - SINGLE UMBILICAL ARTERY [None]
  - LIMB DEFORMITY [None]
  - MATERNAL DRUGS AFFECTING FOETUS [None]
